FAERS Safety Report 4594027-7 (Version None)
Quarter: 2005Q1

REPORT INFORMATION
  Report Type: 
  Country: None (occurrence: None)
  Receive Date: 20050218
  Receipt Date: 20050209
  Transmission Date: 20050727
  Serious: Yes (Hospitalization)
  Sender: FDA-Public Use
  Company Number: ZONI002105

PATIENT
  Age: 31 Year
  Sex: Male

DRUGS (11)
  1. EXCEGRAN (ZONISAMIDE) [Suspect]
     Indication: CONVULSION
     Dosage: 200 MG, 1 IN 1 D, ORAL
     Route: 048
     Dates: start: 19971226, end: 20050124
  2. AZEPTIN (AZELASTINE) [Concomitant]
  3. ONON (PRANLUKAST) [Concomitant]
  4. ALDECIN-AQ (BECLOMETASONE) [Suspect]
  5. PHYSIOLOL 3 (FIGIOSOL 3 GO) [Concomitant]
  6. VITA C (ASCORBIC ACID) [Concomitant]
  7. VITAMEDIN (THIAMINE DISULFIDE) [Concomitant]
  8. AMINOFLUID (AMINOFLUID) [Concomitant]
  9. PRIMAXIN [Concomitant]
  10. SEISHOKU (SODIUM CHLORIDE) [Concomitant]
  11. REMINARON (GABEXATE MESILATE) [Concomitant]

REACTIONS (8)
  - ANAEMIA FOLATE DEFICIENCY [None]
  - BLOOD CREATININE INCREASED [None]
  - BLOOD UREA INCREASED [None]
  - DISSEMINATED INTRAVASCULAR COAGULATION [None]
  - EPISTAXIS [None]
  - HAEMATURIA [None]
  - MOBILITY DECREASED [None]
  - WHITE BLOOD CELL COUNT INCREASED [None]
